FAERS Safety Report 18760467 (Version 1)
Quarter: 2021Q1

REPORT INFORMATION
  Report Type: Report from Study
  Country: US (occurrence: US)
  Receive Date: 20210120
  Receipt Date: 20210120
  Transmission Date: 20210419
  Serious: Yes (Hospitalization)
  Sender: FDA-Public Use
  Company Number: US-TAIHO ONCOLOGY  INC-EU-2021-00135

PATIENT
  Sex: Male
  Weight: 88.49 kg

DRUGS (1)
  1. LONSURF [Suspect]
     Active Substance: TIPIRACIL HYDROCHLORIDE\TRIFLURIDINE
     Indication: RECTAL CANCER
     Dosage: CYCLE UNKNOWN.
     Route: 048

REACTIONS (4)
  - Infection [Unknown]
  - Back pain [Unknown]
  - Hypoaesthesia [Unknown]
  - Paraesthesia [Unknown]
